FAERS Safety Report 11972792 (Version 1)
Quarter: 2016Q1

REPORT INFORMATION
  Report Type: Spontaneous
  Country: US (occurrence: US)
  Receive Date: 20160128
  Receipt Date: 20160128
  Transmission Date: 20160526
  Serious: Yes (Other)
  Sender: FDA-Public Use
  Company Number: US-MEDTRONIC-1047046

PATIENT
  Sex: Female

DRUGS (2)
  1. COMPOUNDED BACLOFEN INTRATHECAL (1500 MCG/ML) [Suspect]
     Active Substance: BACLOFEN
     Indication: CEREBRAL PALSY
     Route: 037
  2. MORPHINE SULFATE. [Suspect]
     Active Substance: MORPHINE SULFATE
     Route: 037

REACTIONS (3)
  - Skin atrophy [None]
  - Implant site atrophy [None]
  - Complication associated with device [None]
